FAERS Safety Report 17895018 (Version 6)
Quarter: 2021Q2

REPORT INFORMATION
  Report Type: Spontaneous
  Country: US (occurrence: US)
  Receive Date: 20200615
  Receipt Date: 20210512
  Transmission Date: 20210717
  Serious: Yes (Other)
  Sender: FDA-Public Use
  Company Number: US-PFIZER INC-2020229055

PATIENT
  Age: 70 Year
  Sex: Male

DRUGS (1)
  1. XELJANZ XR [Suspect]
     Active Substance: TOFACITINIB CITRATE
     Indication: RHEUMATOID ARTHRITIS
     Dosage: 11 MG, DAILY
     Route: 048
     Dates: start: 202005

REACTIONS (7)
  - Disorientation [Unknown]
  - Depression [Unknown]
  - Penile discharge [Recovering/Resolving]
  - Memory impairment [Unknown]
  - Malaise [Unknown]
  - Hepatic enzyme increased [Unknown]
  - Product dose omission issue [Unknown]
